FAERS Safety Report 21802646 (Version 1)
Quarter: 2022Q4

REPORT INFORMATION
  Report Type: Spontaneous
  Country: US (occurrence: None)
  Receive Date: 20221231
  Receipt Date: 20221231
  Transmission Date: 20230113
  Serious: No
  Sender: FDA-Public Use
  Company Number: 2022A413691

PATIENT
  Sex: Female
  Weight: 74.8 kg

DRUGS (2)
  1. BUDESONIDE\FORMOTEROL\GLYCOPYRRONIUM [Suspect]
     Active Substance: BUDESONIDE\FORMOTEROL\GLYCOPYRRONIUM
     Indication: Chronic obstructive pulmonary disease
     Dosage: 160/9/4.5MCG 2 PUFFS BID
     Route: 055
  2. SYMBICORT [Suspect]
     Active Substance: BUDESONIDE\FORMOTEROL FUMARATE DIHYDRATE
     Indication: Chronic obstructive pulmonary disease
     Dosage: 160/4.5 2 PUFFS BID FOR ABOUT 3 YEARS
     Route: 055

REACTIONS (4)
  - Dyspnoea [Unknown]
  - Device use issue [Unknown]
  - Device malfunction [Unknown]
  - Device ineffective [Unknown]

NARRATIVE: CASE EVENT DATE: 20221201
